FAERS Safety Report 6523504-4 (Version None)
Quarter: 2009Q4

REPORT INFORMATION
  Report Type: 
  Country: None (occurrence: None)
  Receive Date: 20091231
  Receipt Date: 20091221
  Transmission Date: 20100525
  Serious: Yes (Disabling)
  Sender: FDA-Public Use
  Company Number: PHHY2009IT57646

PATIENT
  Sex: Female

DRUGS (11)
  1. ZOMETA [Suspect]
     Indication: MULTIPLE MYELOMA
     Dosage: UNK
     Route: 042
     Dates: start: 20070201, end: 20090331
  2. DEXAMETHASONE [Concomitant]
     Dosage: 8 MG
  3. CHLORHEXIDINE GLUCONATE [Concomitant]
  4. LANSOX [Concomitant]
     Dosage: 30 MG
     Route: 048
  5. DEBRIDAT [Concomitant]
  6. ASPIRIN [Concomitant]
     Dosage: 100 MG
     Route: 048
  7. DURAGESIC-100 [Concomitant]
     Dosage: 25 MCG
  8. LAEVOLAC ^BOEHRINGER MANNHEIM^ [Concomitant]
     Route: 048
  9. COTAREG ^NOVARTIS^ [Concomitant]
     Dosage: 160 MG
  10. MINITRAN [Concomitant]
     Dosage: 5 MG
  11. AMARYL [Concomitant]
     Dosage: 4 MG

REACTIONS (1)
  - OSTEONECROSIS [None]
